FAERS Safety Report 10614029 (Version 1)
Quarter: 2014Q4

REPORT INFORMATION
  Report Type: Spontaneous
  Country: CA (occurrence: CA)
  Receive Date: 20141128
  Receipt Date: 20141128
  Transmission Date: 20150529
  Serious: Yes (Hospitalization, Other)
  Sender: FDA-Public Use
  Company Number: CA-ASTRAZENECA-2014SE90409

PATIENT
  Age: 45 Year
  Sex: Male

DRUGS (2)
  1. BRILINTA [Suspect]
     Active Substance: TICAGRELOR
  2. ELVITEGRAVIR/EMTRICITABLE/TENOFOVIR DF/COBICISTAT [Interacting]
     Active Substance: COBICISTAT\ELVITEGRAVIR\EMTRICITABINE\TENOFOVIR

REACTIONS (4)
  - Contusion [Unknown]
  - Myocardial infarction [Unknown]
  - Drug interaction [Unknown]
  - Rectal haemorrhage [Unknown]
